FAERS Safety Report 6789368-9 (Version None)
Quarter: 2010Q2

REPORT INFORMATION
  Report Type: 
  Country: None (occurrence: None)
  Receive Date: 20100623
  Receipt Date: 20090916
  Transmission Date: 20101027
  Serious: No
  Sender: FDA-Public Use
  Company Number: US-PFIZER INC-2007078655

PATIENT
  Sex: Female
  Weight: 80.7 kg

DRUGS (5)
  1. SUTENT [Suspect]
     Indication: RENAL CELL CARCINOMA
     Dosage: 50 MG, 1X/DAY
     Dates: start: 20060901, end: 20070601
  2. PRAVASTATIN [Concomitant]
     Indication: BLOOD CHOLESTEROL INCREASED
  3. LISINOPRIL AND HYDROCHLOROTHIAZIDE [Concomitant]
     Indication: HYPERTENSION
     Dosage: 20 MG / 12.5 MG
  4. XALATAN [Concomitant]
     Indication: GLAUCOMA
  5. CALCIUM CARBONATE [Concomitant]

REACTIONS (13)
  - AGEUSIA [None]
  - DIARRHOEA [None]
  - DISEASE PROGRESSION [None]
  - DYSGEUSIA [None]
  - ERYTHEMA [None]
  - FATIGUE [None]
  - GAIT DISTURBANCE [None]
  - HIATUS HERNIA [None]
  - MOTION SICKNESS [None]
  - NAUSEA [None]
  - RENAL CELL CARCINOMA [None]
  - SKIN LESION [None]
  - VISUAL IMPAIRMENT [None]
